FAERS Safety Report 8610470 (Version 3)
Quarter: 2013Q2

REPORT INFORMATION
  Report Type: Report from Study
  Country: US (occurrence: US)
  Receive Date: 20120612
  Receipt Date: 20130502
  Transmission Date: 20140414
  Serious: Yes (Death, Hospitalization, Other)
  Sender: FDA-Public Use
  Company Number: US-BRISTOL-MYERS SQUIBB COMPANY-16656142

PATIENT
  Age: 65 Year
  Sex: Male

DRUGS (16)
  1. PACLITAXEL [Suspect]
     Indication: NON-SMALL CELL LUNG CANCER
     Route: 042
     Dates: start: 20120524, end: 20120524
  2. CARBOPLATIN [Suspect]
     Indication: NON-SMALL CELL LUNG CANCER
     Route: 042
     Dates: start: 20120524, end: 20120524
  3. CLOBETASOL [Concomitant]
  4. PRAVACHOL [Concomitant]
  5. TOPROL XL [Concomitant]
  6. XALATAN [Concomitant]
  7. ACETAMINOPHEN [Concomitant]
  8. AMLODIPINE [Concomitant]
  9. ASCORBIC ACID [Concomitant]
  10. ASPIRIN [Concomitant]
  11. CALCIUM + VITAMIN D [Concomitant]
     Dosage: TABS
  12. LIDOCAINE + PRILOCAINE [Concomitant]
     Route: 061
     Dates: start: 20120522
  13. MULTIVITAMINS [Concomitant]
  14. OMEGA 3 FISH OIL [Concomitant]
  15. OXYCODONE [Concomitant]
     Dates: start: 20120515
  16. PROCHLORPERAZINE [Concomitant]
     Dates: start: 20120516

REACTIONS (2)
  - Tumour lysis syndrome [Not Recovered/Not Resolved]
  - Acute myeloid leukaemia [Fatal]
